FAERS Safety Report 14184935 (Version 1)
Quarter: 2017Q4

REPORT INFORMATION
  Report Type: Spontaneous
  Country: EG (occurrence: EG)
  Receive Date: 20171114
  Receipt Date: 20171114
  Transmission Date: 20180321
  Serious: Yes (Other)
  Sender: FDA-Public Use
  Company Number: PHHY2017EG167490

PATIENT
  Age: 11 Year
  Sex: Female
  Weight: 40 kg

DRUGS (6)
  1. ALPHAGAN P [Concomitant]
     Active Substance: BRIMONIDINE TARTRATE
     Indication: PRODUCT USED FOR UNKNOWN INDICATION
     Route: 065
  2. SOLUPRED [Concomitant]
     Active Substance: PREDNISOLONE
     Dosage: 30 MG, UNK
     Route: 065
  3. SOLUPRED [Concomitant]
     Active Substance: PREDNISOLONE
     Indication: INFECTIVE UVEITIS
     Dosage: 60 MG, UNK
     Route: 065
  4. TRAVATAN [Suspect]
     Active Substance: TRAVOPROST
     Indication: GLAUCOMA
     Dosage: UNK
     Route: 047
     Dates: start: 20170915
  5. AZARGA [Suspect]
     Active Substance: BRINZOLAMIDE\TIMOLOL MALEATE
     Indication: GLAUCOMA
     Dosage: 1 GTT, QD
     Route: 047
     Dates: start: 20170815
  6. PRED FORTE [Concomitant]
     Active Substance: PREDNISOLONE ACETATE
     Indication: INFECTIVE UVEITIS
     Route: 065

REACTIONS (2)
  - Intraocular pressure increased [Not Recovered/Not Resolved]
  - Drug ineffective [Unknown]

NARRATIVE: CASE EVENT DATE: 20171020
